FAERS Safety Report 9744800 (Version 1)
Quarter: 2013Q4

REPORT INFORMATION
  Report Type: Spontaneous
  Country: FR (occurrence: FR)
  Receive Date: 20131210
  Receipt Date: 20131210
  Transmission Date: 20140711
  Serious: Yes (Other)
  Sender: FDA-Public Use
  Company Number: FR-ROCHE-1316664

PATIENT
  Age: 20 Year
  Sex: Female

DRUGS (1)
  1. MABTHERA [Suspect]
     Indication: IMMUNE THROMBOCYTOPENIC PURPURA
     Route: 065

REACTIONS (2)
  - Demyelination [Recovered/Resolved]
  - Thrombocytopenia [Unknown]
